FAERS Safety Report 25980809 (Version 1)
Quarter: 2025Q4

REPORT INFORMATION
  Report Type: Spontaneous
  Country: US (occurrence: None)
  Receive Date: 20251030
  Receipt Date: 20251030
  Transmission Date: 20260118
  Serious: Yes (Hospitalization)
  Sender: FDA-CTU
  Company Number: None

PATIENT
  Sex: Female

DRUGS (4)
  1. OPSUMIT [Suspect]
     Active Substance: MACITENTAN
     Indication: Pulmonary arterial hypertension
     Dosage: FREQUENCY : DAILY;?
     Route: 048
     Dates: start: 20251015
  2. VELETRI [Suspect]
     Active Substance: EPOPROSTENOL
  3. REMODULIN [Suspect]
     Active Substance: TREPROSTINIL
  4. TADALAFIL [Suspect]
     Active Substance: TADALAFIL

REACTIONS (3)
  - Flushing [None]
  - Fluid retention [None]
  - Oxygen consumption increased [None]
